FAERS Safety Report 10730533 (Version 2)
Quarter: 2015Q1

REPORT INFORMATION
  Report Type: Spontaneous
  Country: SE (occurrence: SE)
  Receive Date: 20150122
  Receipt Date: 20150126
  Transmission Date: 20150721
  Serious: Yes (Life-Threatening, Hospitalization, Other)
  Sender: FDA-Public Use
  Company Number: SE-JNJFOC-20150110751

PATIENT
  Age: 54 Year
  Sex: Male

DRUGS (5)
  1. REMICADE [Suspect]
     Active Substance: INFLIXIMAB
     Indication: ANKYLOSING SPONDYLITIS
     Route: 042
     Dates: start: 20130130
  2. ENALAPRIL MALEATE. [Concomitant]
     Active Substance: ENALAPRIL MALEATE
     Route: 065
  3. ATENOLOL. [Concomitant]
     Active Substance: ATENOLOL
     Route: 065
  4. TIBINIDE [Concomitant]
     Active Substance: ISONIAZID
     Route: 065
  5. PYRIDOXIN LECIVA [Concomitant]
     Route: 065

REACTIONS (2)
  - Pericarditis constrictive [Recovered/Resolved with Sequelae]
  - Pulmonary sarcoidosis [Recovered/Resolved with Sequelae]

NARRATIVE: CASE EVENT DATE: 201305
